FAERS Safety Report 8326151-7 (Version None)
Quarter: 2012Q2

REPORT INFORMATION
  Report Type: 
  Country: None (occurrence: None)
  Receive Date: 20120501
  Receipt Date: 20120425
  Transmission Date: 20120825
  Serious: Yes (Death)
  Sender: FDA-Public Use
  Company Number: US-CELGENEUS-163-21880-12043111

PATIENT
  Sex: Male

DRUGS (8)
  1. MULTI-VITAMINS [Concomitant]
     Route: 048
  2. REVLIMID [Suspect]
     Indication: MULTIPLE MYELOMA
     Dosage: 15 MILLIGRAM
     Route: 048
     Dates: start: 20120227, end: 20120101
  3. COREG [Concomitant]
     Dosage: 25 MILLIGRAM
     Route: 048
  4. MUCINEX DM [Concomitant]
     Dosage: 20-400
     Route: 048
  5. FLOMAX [Concomitant]
     Dosage: .4 MILLIGRAM
     Route: 048
  6. BUMEX [Concomitant]
     Dosage: 1 MILLIGRAM
     Route: 048
  7. VITAMIN D [Concomitant]
     Dosage: 400
     Route: 048
  8. ASPIRIN [Concomitant]
     Dosage: 81 MILLIGRAM
     Route: 048

REACTIONS (1)
  - DEATH [None]
